FAERS Safety Report 15631135 (Version 1)
Quarter: 2018Q4

REPORT INFORMATION
  Report Type: Spontaneous
  Country: US (occurrence: US)
  Receive Date: 20181119
  Receipt Date: 20181119
  Transmission Date: 20190205
  Serious: Yes (Other)
  Sender: FDA-Public Use
  Company Number: US-NOVEN PHARMACEUTICALS, INC.-US2018000652

PATIENT

DRUGS (3)
  1. MINIVELLE [Suspect]
     Active Substance: ESTRADIOL
     Indication: NIGHT SWEATS
     Dosage: 0.0375 MG, UNKNOWN
     Route: 062
     Dates: end: 2017
  2. MINIVELLE [Suspect]
     Active Substance: ESTRADIOL
     Indication: HOT FLUSH
     Dosage: 0.025 MG, UNKNOWN
  3. MINIVELLE [Suspect]
     Active Substance: ESTRADIOL
     Dosage: 0.075 MG, UNKNOWN
     Route: 062
     Dates: start: 2017

REACTIONS (8)
  - Therapy cessation [Recovered/Resolved]
  - Pelvic operation [Recovered/Resolved]
  - Product adhesion issue [Unknown]
  - Thyroid disorder [Unknown]
  - Product administration error [Unknown]
  - Product quality issue [Unknown]
  - Bladder dysfunction [Unknown]
  - Hormone level abnormal [Unknown]

NARRATIVE: CASE EVENT DATE: 2017
